FAERS Safety Report 9118327 (Version 1)
Quarter: 2013Q1

REPORT INFORMATION
  Report Type: Spontaneous
  Country: GB (occurrence: None)
  Receive Date: 20130128
  Receipt Date: 20130128
  Transmission Date: 20140127
  Serious: Yes (Other)
  Sender: FDA-Public Use
  Company Number: 2013010125

PATIENT
  Age: 32 Year
  Sex: Male

DRUGS (1)
  1. CORTIFOAM [Suspect]
     Indication: COLITIS ULCERATIVE
     Dosage: 4 TIME IN TOTAL

REACTIONS (2)
  - Infertility [None]
  - Sperm concentration decreased [None]
